FAERS Safety Report 9266869 (Version 2)
Quarter: 2013Q2

REPORT INFORMATION
  Report Type: Report from Study
  Country: DE (occurrence: DE)
  Receive Date: 20130502
  Receipt Date: 20130509
  Transmission Date: 20140414
  Serious: Yes (Death)
  Sender: FDA-Public Use
  Company Number: DE-AMGEN-DEUNI2013030540

PATIENT
  Age: 73 Year
  Sex: Female
  Weight: 44 kg

DRUGS (1)
  1. PANITUMUMAB [Suspect]
     Indication: COLORECTAL CANCER METASTATIC
     Dosage: 360 MG, Q2WK
     Route: 042
     Dates: start: 20121211, end: 20130206

REACTIONS (1)
  - General physical health deterioration [Fatal]
